FAERS Safety Report 20912088 (Version 1)
Quarter: 2022Q2

REPORT INFORMATION
  Report Type: Spontaneous
  Country: FR (occurrence: FR)
  Receive Date: 20220603
  Receipt Date: 20220603
  Transmission Date: 20220721
  Serious: Yes (Death)
  Sender: FDA-Public Use
  Company Number: None

PATIENT
  Age: 54 Year
  Sex: Female
  Weight: 50 kg

DRUGS (4)
  1. TACROLIMUS [Suspect]
     Active Substance: TACROLIMUS
     Indication: Heart transplant
     Dosage: TACROLIMUS MONOHYDRATE , UNIT DOSE : 5.5 MG , DURATION : 5 YEARS
     Route: 048
     Dates: start: 2017, end: 20220422
  2. TACROLIMUS [Suspect]
     Active Substance: TACROLIMUS
     Dosage: UNIT DOSE : 1 MG , DURATION : 4 DAYS
     Route: 048
     Dates: start: 20220422, end: 20220426
  3. EVEROLIMUS [Suspect]
     Active Substance: EVEROLIMUS
     Indication: Heart transplant
     Dosage: UNIT DOSE : 2.6 MG , DURATION : 4 DAYS
     Route: 048
     Dates: start: 20220422, end: 20220426
  4. EVEROLIMUS [Suspect]
     Active Substance: EVEROLIMUS
     Dosage: UNIT DOSE : 5.4 MG , DURATION : 5 YEARS
     Route: 048
     Dates: start: 2017, end: 20220422

REACTIONS (1)
  - Thrombotic microangiopathy [Fatal]

NARRATIVE: CASE EVENT DATE: 20220422
